FAERS Safety Report 9487089 (Version 1)
Quarter: 2013Q3

REPORT INFORMATION
  Report Type: Spontaneous
  Country: BR (occurrence: None)
  Receive Date: 20130823
  Receipt Date: 20130823
  Transmission Date: 20140515
  Serious: Yes (Hospitalization)
  Sender: FDA-Public Use
  Company Number: DSU-2013-04327

PATIENT
  Sex: Female
  Weight: 73 kg

DRUGS (4)
  1. OLMESARTAN MEDOXOMIL [Suspect]
     Indication: HYPERTENSION
     Route: 048
     Dates: start: 2008, end: 201304
  2. NORVASC [Suspect]
     Indication: HYPERTENSION
     Route: 048
     Dates: start: 201104
  3. DIAMICRON MR (GLICLAZIDE) (5 MILLIGRAM) (GLICLAZIDE) [Concomitant]
  4. PANTOPRAZOLE (PANTOPRAZOLE) (PANTOPRAZOLE) [Concomitant]

REACTIONS (4)
  - Eyelid operation [None]
  - Blood pressure increased [None]
  - Procedural complication [None]
  - Drug ineffective [None]
